FAERS Safety Report 6117607-6 (Version None)
Quarter: 2009Q1

REPORT INFORMATION
  Report Type: 
  Country: None (occurrence: None)
  Receive Date: 20090314
  Receipt Date: 20090126
  Transmission Date: 20090719
  Serious: Yes (Other)
  Sender: FDA-Public Use
  Company Number: US-ABBOTT-09P-163-0499686-00

PATIENT
  Age: 78 Year
  Sex: Male
  Weight: 107.14 kg

DRUGS (1)
  1. HUMIRA [Suspect]
     Indication: RHEUMATOID ARTHRITIS
     Route: 058
     Dates: start: 20081111, end: 20081230

REACTIONS (3)
  - CATARACT [None]
  - NASOPHARYNGITIS [None]
  - SKIN CANCER [None]
